FAERS Safety Report 24104981 (Version 1)
Quarter: 2024Q3

REPORT INFORMATION
  Report Type: Spontaneous
  Country: IN (occurrence: IN)
  Receive Date: 20240717
  Receipt Date: 20240717
  Transmission Date: 20241016
  Serious: Yes (Other)
  Sender: PFIZER
  Company Number: IN-PFIZER INC-PV202400092118

PATIENT
  Age: 62 Year
  Sex: Female

DRUGS (6)
  1. PALBOCICLIB [Suspect]
     Active Substance: PALBOCICLIB
     Indication: Breast cancer female
     Dosage: 100 MG, CYCLIC (ONCE DAILY, 1-0 FOR 21 DAYS)
     Route: 048
     Dates: start: 202109, end: 202403
  2. PALBOCICLIB [Suspect]
     Active Substance: PALBOCICLIB
     Dosage: 100 MG, CYCLIC (ONCE DAILY, 1-0 FOR 21 DAYS)
     Route: 048
     Dates: start: 2024
  3. FEMARA [Concomitant]
     Active Substance: LETROZOLE
     Dosage: 2.5 MG, 1X/DAY
  4. DOMPERIDONE\PANTOPRAZOLE SODIUM [Concomitant]
     Active Substance: DOMPERIDONE\PANTOPRAZOLE SODIUM
     Dosage: UNK UNK, 1X/DAY (1-0)
  5. HYDROCHLOROTHIAZIDE\TELMISARTAN [Concomitant]
     Active Substance: HYDROCHLOROTHIAZIDE\TELMISARTAN
     Dosage: UNK UNK, 1X/DAY (1-0)
  6. RUBIFOL [Concomitant]
     Dosage: UNK UNK, 4X/DAY (1-1-1-1)
     Route: 002

REACTIONS (5)
  - Diabetes mellitus [Recovered/Resolved]
  - Pain [Unknown]
  - Swelling [Unknown]
  - Infection [Unknown]
  - Cellulitis [Recovered/Resolved]

NARRATIVE: CASE EVENT DATE: 20240101
